FAERS Safety Report 7620782-5 (Version None)
Quarter: 2011Q3

REPORT INFORMATION
  Report Type: 
  Country: None (occurrence: None)
  Receive Date: 20110719
  Receipt Date: 20110712
  Transmission Date: 20111222
  Serious: Yes (Hospitalization)
  Sender: FDA-Public Use
  Company Number: US-TEVA-289422USA

PATIENT
  Age: 65 Year
  Sex: Female

DRUGS (5)
  1. CISPLATIN [Suspect]
     Indication: ANAL CANCER
     Dates: start: 20110509, end: 20110613
  2. FUROSEMIDE [Suspect]
  3. HYDROMORPHONE HCL [Concomitant]
  4. FLUOROURACIL [Suspect]
     Indication: ANAL CANCER
     Dates: start: 20110509, end: 20110617
  5. CETUXIMAB [Suspect]
     Indication: ANAL CANCER
     Dates: start: 20110509

REACTIONS (6)
  - NAUSEA [None]
  - DEHYDRATION [None]
  - DIARRHOEA [None]
  - VOMITING [None]
  - HYPOKALAEMIA [None]
  - HYPONATRAEMIA [None]
